FAERS Safety Report 15232188 (Version 1)
Quarter: 2018Q3

REPORT INFORMATION
  Report Type: Spontaneous
  Country: US (occurrence: US)
  Receive Date: 20180802
  Receipt Date: 20180802
  Transmission Date: 20181010
  Serious: Yes (Other)
  Sender: FDA-Public Use
  Company Number: US-009507513-1808USA000930

PATIENT
  Age: 32 Year
  Sex: Male

DRUGS (4)
  1. DESLORATADINE (+) PSEUDOEPHEDRINE SULFATE [Suspect]
     Active Substance: DESLORATADINE\PSEUDOEPHEDRINE SULFATE
     Indication: NASAL CONGESTION
  2. DESLORATADINE (+) PSEUDOEPHEDRINE SULFATE [Suspect]
     Active Substance: DESLORATADINE\PSEUDOEPHEDRINE SULFATE
     Indication: HYPERSENSITIVITY
     Dosage: 120 MG, QD (EVERY MORNING)
  3. LORATADINE. [Concomitant]
     Active Substance: LORATADINE
     Indication: HYPERSENSITIVITY
     Dosage: 10 MG, UNK
  4. LORATADINE. [Concomitant]
     Active Substance: LORATADINE
     Indication: NASAL CONGESTION

REACTIONS (3)
  - Drug withdrawal syndrome [Unknown]
  - Therapeutic response unexpected [Unknown]
  - Major depression [Recovered/Resolved]
